FAERS Safety Report 18539071 (Version 2)
Quarter: 2021Q1

REPORT INFORMATION
  Report Type: Spontaneous
  Country: US (occurrence: US)
  Receive Date: 20201124
  Receipt Date: 20210202
  Transmission Date: 20210419
  Serious: Yes (Hospitalization)
  Sender: FDA-Public Use
  Company Number: US-AMGEN-USASP2020188788

PATIENT
  Age: 73 Year
  Sex: Female

DRUGS (16)
  1. FLUTICASONE. [Concomitant]
     Active Substance: FLUTICASONE
     Indication: HYPERSENSITIVITY
     Dosage: UNK (ALLERGY RELIEF)
     Route: 045
  2. IRON [Concomitant]
     Active Substance: IRON
     Dosage: 325 MILLIGRAM(65 MILLIGRAM)
     Route: 048
  3. SUPER OMEGA 3 [COLECALCIFEROL;FOLATE SODIUM;MAGNESIUM;OMEGA?3 FATTY AC [Concomitant]
     Route: 048
  4. CINNAMON [CINNAMOMUM CASSIA] [Concomitant]
     Active Substance: CINNAMON\HERBALS
     Indication: HYPERSENSITIVITY
     Route: 048
  5. DULOXETINE. [Concomitant]
     Active Substance: DULOXETINE
     Route: 048
  6. MONTELUKAST [Concomitant]
     Active Substance: MONTELUKAST SODIUM
     Dosage: 10 MILLIGRAM
     Route: 048
  7. VITAMIN D [COLECALCIFEROL] [Concomitant]
     Active Substance: CHOLECALCIFEROL
     Dosage: UNK
  8. OTEZLA [Suspect]
     Active Substance: APREMILAST
     Indication: PSORIASIS
     Dosage: 30 MILLIGRAM, BID
     Route: 048
  9. PRAVASTATIN. [Concomitant]
     Active Substance: PRAVASTATIN
     Dosage: 80 MILLIGRAM
     Route: 048
  10. METOPROLOL SUCCINATE. [Concomitant]
     Active Substance: METOPROLOL SUCCINATE
     Dosage: 25 MILLIGRAM
     Route: 048
  11. OTEZLA [Suspect]
     Active Substance: APREMILAST
     Dosage: 30 MILLIGRAM, QD
     Route: 048
  12. PRESERVISION AREDS [Concomitant]
     Active Substance: MINERALS\VITAMINS
     Route: 048
  13. BETAMETHASONE. [Concomitant]
     Active Substance: BETAMETHASONE
     Indication: PSORIASIS
     Dosage: APPLY TWICE DAILY AS NEEDED TO SEVERE FLARES
     Route: 061
  14. CALCIUM [Concomitant]
     Active Substance: CALCIUM
     Dosage: 600 MILLIGRAM
  15. HYDROCHLOROTHIAZIDE + LOSARTAN [Concomitant]
     Active Substance: HYDROCHLOROTHIAZIDE\LOSARTAN
     Dosage: 50?12.5 MILLIGRAM
     Route: 048
  16. OMEPRAZOLE. [Concomitant]
     Active Substance: OMEPRAZOLE
     Dosage: 40 MILLIGRAM
     Route: 048

REACTIONS (2)
  - Unevaluable event [Unknown]
  - Onychomycosis [Unknown]
